FAERS Safety Report 13738453 (Version 1)
Quarter: 2017Q3

REPORT INFORMATION
  Report Type: Spontaneous
  Country: US (occurrence: US)
  Receive Date: 20170710
  Receipt Date: 20170710
  Transmission Date: 20171127
  Serious: No
  Sender: FDA-Public Use
  Company Number: US-SAOL THERAPEUTICS-2016SAO00875

PATIENT
  Age: 45 Year
  Sex: Male

DRUGS (2)
  1. BACLOFEN. [Suspect]
     Active Substance: BACLOFEN
     Indication: PAIN
  2. FENTANYL. [Suspect]
     Active Substance: FENTANYL

REACTIONS (6)
  - Device alarm issue [Recovered/Resolved]
  - Implant site scar [Not Recovered/Not Resolved]
  - Drug dose omission [Unknown]
  - Emotional distress [Unknown]
  - Treatment noncompliance [Unknown]
  - Off label use [Unknown]

NARRATIVE: CASE EVENT DATE: 201509
